FAERS Safety Report 24968251 (Version 1)
Quarter: 2025Q1

REPORT INFORMATION
  Report Type: Spontaneous
  Country: IT (occurrence: IT)
  Receive Date: 20250214
  Receipt Date: 20250214
  Transmission Date: 20250409
  Serious: Yes (Hospitalization, Disabling)
  Sender: ROCHE
  Company Number: None

PATIENT
  Age: 52 Year
  Sex: Female

DRUGS (1)
  1. OCREVUS [Suspect]
     Active Substance: OCRELIZUMAB
     Indication: Multiple sclerosis
     Dosage: 1 INFUSION ACCORDING TO PROTOCOL EVERY SIX MONTHS, THE PATIENT HAS ALWAYS TOLERATED THE THERAPY WELL
     Route: 042
     Dates: start: 20201112, end: 20240723

REACTIONS (2)
  - West Nile viral infection [Not Recovered/Not Resolved]
  - Encephalitis [Not Recovered/Not Resolved]

NARRATIVE: CASE EVENT DATE: 20240904
